FAERS Safety Report 17839933 (Version 1)
Quarter: 2020Q2

REPORT INFORMATION
  Report Type: Report from Study
  Country: US (occurrence: US)
  Receive Date: 20200529
  Receipt Date: 20200529
  Transmission Date: 20200714
  Serious: Yes (Other)
  Sender: FDA-Public Use
  Company Number: US-MYLANLABS-2020M1052556

PATIENT

DRUGS (1)
  1. VALPROIC ACID. [Suspect]
     Active Substance: VALPROIC ACID
     Indication: GLIOMA
     Dosage: 15MG/KGQDDIVIDED IN THREE DOSES; ESCALATED BY 5 MG/KG/DAY EVERY 3-5 DAYS TO..
     Route: 065

REACTIONS (4)
  - Amylase increased [Unknown]
  - Pancreatitis [Unknown]
  - Off label use [Unknown]
  - Lipase increased [Unknown]
